FAERS Safety Report 17651434 (Version 1)
Quarter: 2020Q2

REPORT INFORMATION
  Report Type: Spontaneous
  Country: US (occurrence: US)
  Receive Date: 20200409
  Receipt Date: 20200409
  Transmission Date: 20200713
  Serious: Yes (Other)
  Sender: FDA-Public Use
  Company Number: None

PATIENT
  Age: 73 Year
  Sex: Male

DRUGS (1)
  1. BEOVU [Suspect]
     Active Substance: BROLUCIZUMAB-DBLL
     Indication: AGE-RELATED MACULAR DEGENERATION
     Dosage: ?          OTHER FREQUENCY:MONTHLY;OTHER ROUTE:INTRAVITREAL INJECTIONS?
     Dates: start: 20200213, end: 20200409

REACTIONS (3)
  - Therapy interrupted [None]
  - Visual impairment [None]
  - Vasculitis [None]

NARRATIVE: CASE EVENT DATE: 20200409
